FAERS Safety Report 20847228 (Version 1)
Quarter: 2022Q2

REPORT INFORMATION
  Report Type: Spontaneous
  Country: US (occurrence: US)
  Receive Date: 20220519
  Receipt Date: 20220519
  Transmission Date: 20220721
  Serious: No
  Sender: FDA-Public Use
  Company Number: CID000000000024220

PATIENT
  Age: 64 Year
  Sex: Female

DRUGS (3)
  1. CARVEDILOL [Suspect]
     Active Substance: CARVEDILOL
     Dosage: 12.5 MILLIGRAM DAILY; FORM STRENGTH: 6.25MG, 6.25MG IN THE MORNING AND 6.25MG AT NIGHT
     Dates: start: 20220417
  2. CARVEDILOL [Suspect]
     Active Substance: CARVEDILOL
     Dosage: 12.5 MILLIGRAM DAILY; FORM STRENGTH: 3.125MG, TAKES 4 TABLETS INSTEAD OF 2 DAILY
     Dates: start: 20220417
  3. BENICAR [Concomitant]
     Active Substance: OLMESARTAN MEDOXOMIL
     Route: 065

REACTIONS (4)
  - Chest discomfort [Unknown]
  - Dyspnoea [Unknown]
  - Prescription drug used without a prescription [Unknown]
  - Dyspnoea exertional [Unknown]
